FAERS Safety Report 5887528-2 (Version None)
Quarter: 2008Q3

REPORT INFORMATION
  Report Type: 
  Country: None (occurrence: None)
  Receive Date: 20080918
  Receipt Date: 20080910
  Transmission Date: 20090109
  Serious: Yes (Disabling)
  Sender: FDA-Public Use
  Company Number: PHHY2008IT08021

PATIENT
  Sex: Female

DRUGS (6)
  1. ZOMETA [Suspect]
     Indication: MULTIPLE MYELOMA
     Dosage: 4 MG , QMO
     Route: 042
     Dates: start: 20050101, end: 20080507
  2. THALIDOMIDE [Concomitant]
  3. NAPRILENE [Concomitant]
  4. GLIBOMET [Concomitant]
  5. OMEPRAZEN [Concomitant]
  6. COUMADIN [Concomitant]
     Route: 048

REACTIONS (1)
  - OSTEONECROSIS [None]
